FAERS Safety Report 24566188 (Version 1)
Quarter: 2024Q4

REPORT INFORMATION
  Report Type: Spontaneous
  Country: US (occurrence: None)
  Receive Date: 20241029
  Receipt Date: 20241029
  Transmission Date: 20250115
  Serious: No
  Sender: Public
  Company Number: None

PATIENT
  Age: 54 Year
  Sex: Male
  Weight: 105 kg

DRUGS (1)
  1. ETOMIDATE [Suspect]
     Active Substance: ETOMIDATE
     Indication: Anaesthesia
     Dosage: OTHER FREQUENCY : ONCE;?
     Route: 042
     Dates: start: 20240514, end: 20240514

REACTIONS (5)
  - Seizure [None]
  - Myoclonus [None]
  - Endotracheal intubation complication [None]
  - Bruxism [None]
  - Adverse drug reaction [None]

NARRATIVE: CASE EVENT DATE: 20240514
